FAERS Safety Report 5464372-1 (Version None)
Quarter: 2007Q3

REPORT INFORMATION
  Report Type: 
  Country: None (occurrence: None)
  Receive Date: 20070921
  Receipt Date: 20070910
  Transmission Date: 20080115
  Serious: Yes (Hospitalization)
  Sender: FDA-Public Use
  Company Number: PHFR2007IE02316

PATIENT
  Age: 64 Year
  Sex: Male

DRUGS (11)
  1. CLOZARIL [Suspect]
     Indication: SCHIZOPHRENIA
     Dosage: 100MG MANE / 150MG NOCTE
     Route: 048
     Dates: start: 20060720
  2. GLUCOPHAGE [Concomitant]
     Dosage: 850 MG, TID
     Route: 048
  3. ASPIRIN [Concomitant]
     Dosage: 75 MG, QD
     Route: 048
  4. INEGY [Concomitant]
     Dosage: 10/20 MG QD
     Route: 048
  5. ZYPREXA [Concomitant]
     Dosage: 5 MG, BID
     Route: 048
  6. SERENACE [Concomitant]
     Dosage: 5 MG, BID
     Route: 048
  7. CENTYL [Concomitant]
     Dosage: 5 MG MANE
     Route: 048
  8. DOXAZOSIN [Concomitant]
     Route: 048
  9. AMARYL [Concomitant]
     Dosage: 3 MG, QD
     Route: 048
  10. CLONAZEPAM [Concomitant]
     Dosage: 0.5 MG, BID
     Route: 048
  11. RAMIPRIL [Concomitant]
     Dosage: 5 MG, QD
     Route: 048

REACTIONS (20)
  - ACTIVATED PARTIAL THROMBOPLASTIN TIME PROLONGED [None]
  - ASTHENIA [None]
  - BALANCE DISORDER [None]
  - BLOOD CALCIUM DECREASED [None]
  - BLOOD CREATININE INCREASED [None]
  - BLOOD FIBRINOGEN INCREASED [None]
  - BLOOD GLUCOSE DECREASED [None]
  - BLOOD UREA INCREASED [None]
  - FACTOR XI DEFICIENCY [None]
  - GLOMERULAR FILTRATION RATE DECREASED [None]
  - HAEMATOCRIT DECREASED [None]
  - HAEMOGLOBIN DECREASED [None]
  - LUPUS-LIKE SYNDROME [None]
  - MEAN CELL HAEMOGLOBIN CONCENTRATION INCREASED [None]
  - MUSCULAR WEAKNESS [None]
  - PLATELET COUNT DECREASED [None]
  - PROTEIN TOTAL DECREASED [None]
  - RED BLOOD CELL COUNT DECREASED [None]
  - RED BLOOD CELL SEDIMENTATION RATE INCREASED [None]
  - STAPHYLOCOCCAL INFECTION [None]
